FAERS Safety Report 9486952 (Version 1)
Quarter: 2013Q3

REPORT INFORMATION
  Report Type: Spontaneous
  Country: US (occurrence: None)
  Receive Date: 20130827
  Receipt Date: 20130827
  Transmission Date: 20140515
  Serious: Yes (Hospitalization, Other)
  Sender: FDA-Public Use
  Company Number: 201308000246

PATIENT
  Age: 5 Month
  Sex: Male

DRUGS (6)
  1. NITRIC OXIDE [Suspect]
     Indication: CARDIOGENIC SHOCK
     Dosage: 15 PPM, INHALATION
  2. MILRINONE [Concomitant]
  3. MILRINONE [Concomitant]
  4. MILRINONE [Concomitant]
  5. VASOPRESSIN [Concomitant]
  6. OXYGEN (OXYGEN) [Suspect]

REACTIONS (9)
  - Pulmonary oedema [None]
  - Off label use [None]
  - Mitral valve incompetence [None]
  - Hypoxia [None]
  - Hypotension [None]
  - Pulmonary hypertension [None]
  - Condition aggravated [None]
  - Mitral valve stenosis [None]
  - Intracardiac thrombus [None]
